FAERS Safety Report 24205141 (Version 1)
Quarter: 2024Q3

REPORT INFORMATION
  Report Type: Spontaneous
  Country: AU (occurrence: AU)
  Receive Date: 20240813
  Receipt Date: 20240813
  Transmission Date: 20241016
  Serious: Yes (Other)
  Sender: BAYER
  Company Number: AU-BAYER-2024A112685

PATIENT
  Sex: Male

DRUGS (1)
  1. FINERENONE [Suspect]
     Active Substance: FINERENONE
     Dosage: UNK
     Route: 048
     Dates: start: 2023

REACTIONS (4)
  - Glomerular filtration rate decreased [None]
  - Blood pressure systolic increased [None]
  - Urine albumin/creatinine ratio decreased [None]
  - Blood potassium increased [None]
